FAERS Safety Report 19748707 (Version 1)
Quarter: 2021Q3

REPORT INFORMATION
  Report Type: Spontaneous
  Country: US (occurrence: US)
  Receive Date: 20210824
  Receipt Date: 20210824
  Transmission Date: 20211014
  Serious: Yes (Hospitalization)
  Sender: FDA-Public Use
  Company Number: None

PATIENT
  Age: 32 Year
  Sex: Male
  Weight: 95 kg

DRUGS (4)
  1. METHOTREXATE. [Suspect]
     Active Substance: METHOTREXATE
     Dates: end: 20210804
  2. PONATINIB HYDROCHLORIDE [Suspect]
     Active Substance: PONATINIB
     Dates: end: 20210815
  3. SPRYCEL [Suspect]
     Active Substance: DASATINIB
     Dates: end: 20210803
  4. CYTARABINE. [Suspect]
     Active Substance: CYTARABINE
     Dates: end: 20210806

REACTIONS (5)
  - Chest pain [None]
  - Pancytopenia [None]
  - Platelet transfusion [None]
  - Dyspnoea [None]
  - Pleural effusion [None]

NARRATIVE: CASE EVENT DATE: 20210816
